FAERS Safety Report 5382968-2 (Version None)
Quarter: 2007Q3

REPORT INFORMATION
  Report Type: 
  Country: None (occurrence: None)
  Receive Date: 20070710
  Receipt Date: 20070706
  Transmission Date: 20080115
  Serious: Yes (Other)
  Sender: FDA-Public Use
  Company Number: A0662307A

PATIENT
  Age: 4 Year
  Sex: Male
  Weight: 19 kg

DRUGS (4)
  1. CEFUROXIME [Suspect]
     Indication: SINUSITIS
     Route: 048
     Dates: start: 20070630, end: 20070702
  2. RANITIDINE HYDROCHLORIDE [Concomitant]
     Route: 065
     Dates: start: 20070630, end: 20070702
  3. PREDSIM [Concomitant]
     Dosage: 5ML TWICE PER DAY
     Dates: start: 20070630, end: 20070702
  4. UNKNOWN MEDICATION [Concomitant]
     Dates: start: 20070603

REACTIONS (3)
  - HYPERSENSITIVITY [None]
  - INSOMNIA [None]
  - JAUNDICE [None]
